FAERS Safety Report 8060538-5 (Version None)
Quarter: 2012Q1

REPORT INFORMATION
  Report Type: 
  Country: None (occurrence: None)
  Receive Date: 20120120
  Receipt Date: 20120117
  Transmission Date: 20120608
  Serious: Yes (Death)
  Sender: FDA-Public Use
  Company Number: CHPA2012US001485

PATIENT
  Age: 74 Year
  Sex: Female

DRUGS (1)
  1. EXCEDRIN EXTRA STRENGTH TABLETS [Suspect]
     Indication: PAIN
     Dosage: 4-8 TABS ALMOST DAILY
     Route: 048
     Dates: start: 20100101, end: 20110122

REACTIONS (1)
  - CARDIAC FAILURE [None]
